FAERS Safety Report 8742026 (Version 2)
Quarter: 2013Q2

REPORT INFORMATION
  Report Type: Spontaneous
  Country: US (occurrence: US)
  Receive Date: 20120824
  Receipt Date: 20130516
  Transmission Date: 20140414
  Serious: Yes (Hospitalization, Other)
  Sender: FDA-Public Use
  Company Number: US-JNJFOC-20120811002

PATIENT
  Age: 55 Year
  Sex: Male
  Weight: 118 kg

DRUGS (6)
  1. MOTRIN [Suspect]
     Indication: ARTHRALGIA
     Dosage: UNKNOWN DOSE, 6 TIMES A DAY
     Route: 065
     Dates: start: 2009
  2. MOTRIN [Suspect]
     Indication: ARTHRALGIA
     Dosage: UNKNOWN DOSE, 6 TIMES A DAY
     Route: 065
     Dates: start: 2009
  3. MOTRIN [Suspect]
     Indication: PAIN IN EXTREMITY
     Dosage: UNKNOWN DOSE, 6 TIMES A DAY
     Route: 065
     Dates: start: 2009
  4. MOTRIN [Suspect]
     Indication: BACK PAIN
     Dosage: UNKNOWN DOSE, 6 TIMES A DAY
     Route: 065
     Dates: start: 2009
  5. ADVAIR [Suspect]
     Indication: CHRONIC OBSTRUCTIVE PULMONARY DISEASE
     Route: 065
     Dates: end: 201012
  6. AN UNKNOWN MEDICATION [Suspect]
     Indication: CHRONIC OBSTRUCTIVE PULMONARY DISEASE
     Route: 045

REACTIONS (5)
  - Renal impairment [Unknown]
  - Blood potassium decreased [Unknown]
  - Weight decreased [Unknown]
  - Adverse event [Unknown]
  - Dehydration [Unknown]
